FAERS Safety Report 18955421 (Version 44)
Quarter: 2025Q2

REPORT INFORMATION
  Report Type: Report from Study
  Country: US (occurrence: US)
  Receive Date: 20210301
  Receipt Date: 20250509
  Transmission Date: 20250717
  Serious: Yes (Hospitalization, Other)
  Sender: TAKEDA
  Company Number: US-TAKEDA-US202032013

PATIENT
  Age: 77 Year
  Sex: Female
  Weight: 41 kg

DRUGS (85)
  1. HUMAN IMMUNOGLOBULIN G [Suspect]
     Active Substance: HUMAN IMMUNOGLOBULIN G
     Indication: Immunodeficiency common variable
     Dosage: 35 GRAM, Q4WEEKS
     Dates: start: 20141110
  2. HUMAN IMMUNOGLOBULIN G [Suspect]
     Active Substance: HUMAN IMMUNOGLOBULIN G
     Dosage: 35 GRAM, Q4WEEKS
     Dates: start: 20141116
  3. HUMAN IMMUNOGLOBULIN G [Suspect]
     Active Substance: HUMAN IMMUNOGLOBULIN G
     Dosage: 35 GRAM, Q4WEEKS
  4. HUMAN IMMUNOGLOBULIN G [Suspect]
     Active Substance: HUMAN IMMUNOGLOBULIN G
     Dosage: 35 GRAM, Q4WEEKS
  5. HUMAN IMMUNOGLOBULIN G [Suspect]
     Active Substance: HUMAN IMMUNOGLOBULIN G
     Dosage: 35 GRAM, Q4WEEKS
  6. HUMAN IMMUNOGLOBULIN G [Suspect]
     Active Substance: HUMAN IMMUNOGLOBULIN G
     Dosage: 35 GRAM, Q4WEEKS
  7. HUMAN IMMUNOGLOBULIN G [Suspect]
     Active Substance: HUMAN IMMUNOGLOBULIN G
     Dosage: 35 GRAM, Q4WEEKS
  8. VARICELLA-ZOSTER VACCINE NOS [Suspect]
     Active Substance: VARICELLA-ZOSTER VACCINE
     Indication: Product used for unknown indication
  9. DIPHENHYDRAMINE [Concomitant]
     Active Substance: DIPHENHYDRAMINE
  10. DIPHENHYDRAMINE HYDROCHLORIDE [Concomitant]
     Active Substance: DIPHENHYDRAMINE HYDROCHLORIDE
  11. ACETAMINOPHEN\HYDROCODONE [Concomitant]
     Active Substance: ACETAMINOPHEN\HYDROCODONE
  12. ESOMEPRAZOLE MAGNESIUM [Concomitant]
     Active Substance: ESOMEPRAZOLE MAGNESIUM
  13. EPINEPHRINE [Concomitant]
     Active Substance: EPINEPHRINE
  14. SODIUM CHLORIDE [Concomitant]
     Active Substance: SODIUM CHLORIDE
  15. Echinacea + goldenseal [Concomitant]
  16. DICYCLOMINE HYDROCHLORIDE [Concomitant]
     Active Substance: DICYCLOMINE HYDROCHLORIDE
  17. TOPIRAMATE [Concomitant]
     Active Substance: TOPIRAMATE
  18. BIOTIN [Concomitant]
     Active Substance: BIOTIN
  19. PROLIA [Concomitant]
     Active Substance: DENOSUMAB
  20. MIRALAX [Concomitant]
     Active Substance: POLYETHYLENE GLYCOL 3350
  21. CLINDAMYCIN HYDROCHLORIDE [Concomitant]
     Active Substance: CLINDAMYCIN HYDROCHLORIDE
  22. TYLENOL ARTHRITIS PAIN [Concomitant]
     Active Substance: ACETAMINOPHEN
  23. ALEVE [Concomitant]
     Active Substance: NAPROXEN SODIUM
  24. ALEVE [Concomitant]
     Active Substance: NAPROXEN SODIUM
     Dosage: UNK, QD
  25. PFIZER-BIONTECH COVID-19 VACCINE [Concomitant]
     Active Substance: TOZINAMERAN
  26. TRAZODONE HCL [Concomitant]
     Active Substance: TRAZODONE HYDROCHLORIDE
  27. AIMOVIG [Concomitant]
     Active Substance: ERENUMAB-AOOE
  28. ALPRAZOLAM [Concomitant]
     Active Substance: ALPRAZOLAM
  29. PEPPERMINT OIL [Concomitant]
     Active Substance: PEPPERMINT OIL
  30. GABAPENTIN [Concomitant]
     Active Substance: GABAPENTIN
  31. LOSARTAN POTASSIUM [Concomitant]
     Active Substance: LOSARTAN POTASSIUM
  32. SODIUM CHLORIDE [Concomitant]
     Active Substance: SODIUM CHLORIDE
  33. MECLIZINE HYDROCHLORIDE [Concomitant]
     Active Substance: MECLIZINE HYDROCHLORIDE
  34. CALCIUM [Concomitant]
     Active Substance: CALCIUM
  35. VITAMIN C [Concomitant]
     Active Substance: ASCORBIC ACID
  36. ZETIA [Concomitant]
     Active Substance: EZETIMIBE
  37. ROSUVASTATIN CALCIUM [Concomitant]
     Active Substance: ROSUVASTATIN CALCIUM
  38. CETIRIZINE HCL [Concomitant]
     Active Substance: CETIRIZINE HYDROCHLORIDE
  39. TADALAFIL [Concomitant]
     Active Substance: TADALAFIL
  40. VITAMIN D3 [Concomitant]
     Active Substance: CHOLECALCIFEROL
  41. Citracal + D3 [Concomitant]
  42. VITAMIN E [Concomitant]
     Active Substance: .ALPHA.-TOCOPHEROL
  43. ROSUVASTATIN [Concomitant]
     Active Substance: ROSUVASTATIN
  44. HYDROCODONE [Concomitant]
     Active Substance: HYDROCODONE
  45. ACETAMINOPHEN [Concomitant]
     Active Substance: ACETAMINOPHEN
  46. ESOMEPRAZOLE [Concomitant]
     Active Substance: ESOMEPRAZOLE
  47. MAGNESIUM [Concomitant]
     Active Substance: MAGNESIUM
  48. SACCHAROMYCES CEREVISIAE [Concomitant]
     Active Substance: SACCHAROMYCES CEREVISIAE
  49. CLINDAMYCIN [Concomitant]
     Active Substance: CLINDAMYCIN
  50. TRAZODONE [Concomitant]
     Active Substance: TRAZODONE HYDROCHLORIDE
  51. LOSARTAN [Concomitant]
     Active Substance: LOSARTAN
  52. FIBER LAX [Concomitant]
     Active Substance: CALCIUM POLYCARBOPHIL
  53. TRULANCE [Concomitant]
     Active Substance: PLECANATIDE
  54. CETIRIZINE [Concomitant]
     Active Substance: CETIRIZINE HYDROCHLORIDE
     Indication: Product used for unknown indication
  55. MAXIMUM STRENGTH BLUE EMU PAIN RELIEF BLU EMU [Concomitant]
     Active Substance: TROLAMINE SALICYLATE
  56. EMGALITY [Concomitant]
     Active Substance: GALCANEZUMAB-GNLM
  57. NAPROXEN [Concomitant]
     Active Substance: NAPROXEN
  58. CITRUCEL [Concomitant]
     Active Substance: METHYLCELLULOSE (4000 CPS)
  59. IPRATROPIUM BROMIDE [Concomitant]
     Active Substance: IPRATROPIUM BROMIDE
  60. FLUTICASONE [Concomitant]
     Active Substance: FLUTICASONE
  61. VICODIN [Concomitant]
     Active Substance: ACETAMINOPHEN\HYDROCODONE BITARTRATE
  62. VANCOMYCIN [Concomitant]
     Active Substance: VANCOMYCIN
  63. ERYTHROMYCIN [Concomitant]
     Active Substance: ERYTHROMYCIN
  64. PREVNAR [Concomitant]
     Active Substance: PNEUMOCOCCAL 7-VALENT CONJUGATE VACCINE (DIPHTHERIA CRM197 PROTEIN)
  65. HERBALS\TURMERIC [Concomitant]
     Active Substance: HERBALS\TURMERIC
  66. ASPIRIN [Concomitant]
     Active Substance: ASPIRIN
  67. DICYCLOMINE [Concomitant]
     Active Substance: DICYCLOMINE HYDROCHLORIDE
  68. ANBESOL REGULAR STRENGTH GEL [Concomitant]
     Active Substance: BENZOCAINE
  69. MECLIZINE [Concomitant]
     Active Substance: MECLIZINE HYDROCHLORIDE
  70. PEPCID [Concomitant]
     Active Substance: FAMOTIDINE
  71. LUBIPROSTONE [Concomitant]
     Active Substance: LUBIPROSTONE
  72. ROBITUSSIN (GUAIFENESIN) [Concomitant]
     Active Substance: GUAIFENESIN
  73. SOLU-MEDROL [Concomitant]
     Active Substance: METHYLPREDNISOLONE SODIUM SUCCINATE
  74. GUAIFENESIN AND CODEINE PHOSPHATE [Concomitant]
     Active Substance: CODEINE PHOSPHATE\GUAIFENESIN
  75. LINZESS [Concomitant]
     Active Substance: LINACLOTIDE
  76. SPIKEVAX [Concomitant]
     Active Substance: CX-046684
  77. BENZALKONIUM CHLORIDE\SODIUM CHLORIDE [Concomitant]
     Active Substance: BENZALKONIUM CHLORIDE\SODIUM CHLORIDE
  78. TRIAMCINOLONE ACETONIDE [Concomitant]
     Active Substance: TRIAMCINOLONE ACETONIDE
  79. SHINGRIX [Concomitant]
     Active Substance: RECOMBINANT VARICELLA ZOSTER VIRUS (VZV) GLYCOPROTEIN E
  80. PNEUMOVAX 23 [Concomitant]
     Active Substance: PNEUMOCOCCAL VACCINE, POLYVALENT 23
  81. FLUAD NOS [Concomitant]
     Active Substance: INFLUENZA VIRUS VACCINE
  82. MODERNA COVID-19 VACCINE [Concomitant]
     Active Substance: ELASOMERAN
  83. REGLAN [Concomitant]
     Active Substance: METOCLOPRAMIDE HYDROCHLORIDE
  84. AREXVY [Concomitant]
     Active Substance: RECOMBINANT RESPIRATORY SYNCYTIAL VIRUS PRE-FUSION F PROTEIN ANTIGEN
  85. LASIX [Concomitant]
     Active Substance: FUROSEMIDE

REACTIONS (44)
  - Blood sodium decreased [Unknown]
  - Gastrointestinal stoma complication [Unknown]
  - Aortic occlusion [Unknown]
  - Oedema peripheral [Unknown]
  - Rotator cuff syndrome [Unknown]
  - Cardiac disorder [Unknown]
  - Localised infection [Recovered/Resolved]
  - Constipation [Unknown]
  - Foot deformity [Unknown]
  - Exostosis [Unknown]
  - Bacterial infection [Unknown]
  - Limb discomfort [Unknown]
  - Herpes zoster [Unknown]
  - Fall [Unknown]
  - Nasopharyngitis [Unknown]
  - Post procedural swelling [Unknown]
  - Productive cough [Unknown]
  - Ingrowing nail [Unknown]
  - Dry skin [Unknown]
  - Vaccination site erythema [Unknown]
  - Vaccination site pain [Unknown]
  - Intervertebral disc disorder [Unknown]
  - Weight decreased [Unknown]
  - Joint stiffness [Unknown]
  - Infection [Unknown]
  - Viral infection [Unknown]
  - Sinusitis [Unknown]
  - Hypoaesthesia [Unknown]
  - Contusion [Unknown]
  - Nasal congestion [Recovering/Resolving]
  - Abdominal distension [Unknown]
  - Rash erythematous [Not Recovered/Not Resolved]
  - Chest pain [Unknown]
  - Pain [Unknown]
  - Abdominal pain upper [Unknown]
  - Pain in extremity [Not Recovered/Not Resolved]
  - Back pain [Unknown]
  - Arthralgia [Not Recovered/Not Resolved]
  - Diarrhoea [Unknown]
  - Vomiting [Unknown]
  - Pyrexia [Unknown]
  - Abdominal pain [Unknown]
  - Fatigue [Unknown]
  - Nausea [Unknown]

NARRATIVE: CASE EVENT DATE: 20240201
